FAERS Safety Report 18515697 (Version 1)
Quarter: 2020Q4

REPORT INFORMATION
  Report Type: Spontaneous
  Country: US (occurrence: US)
  Receive Date: 20201117
  Receipt Date: 20201117
  Transmission Date: 20210114
  Serious: No
  Sender: FDA-Public Use
  Company Number: None

PATIENT

DRUGS (2)
  1. FOSPHENYTOIN [Suspect]
     Active Substance: FOSPHENYTOIN
  2. FAMOTIDINE. [Suspect]
     Active Substance: FAMOTIDINE

REACTIONS (2)
  - Product name confusion [None]
  - Intercepted product selection error [None]

NARRATIVE: CASE EVENT DATE: 20201115
